FAERS Safety Report 5643468-5 (Version None)
Quarter: 2008Q1

REPORT INFORMATION
  Report Type: 
  Country: None (occurrence: None)
  Receive Date: 20080131
  Receipt Date: 20071117
  Transmission Date: 20080703
  Serious: Yes (Other)
  Sender: FDA-Public Use
  Company Number: 163-21880-07111096

PATIENT
  Age: 59 Year
  Sex: Female
  Weight: 77.1 kg

DRUGS (2)
  1. REVLIMID [Suspect]
     Indication: MULTIPLE MYELOMA
     Dosage: 25 GM, QD ON DAYS 1-21, EVERY 28 DAYS, ORAL
     Route: 048
     Dates: start: 20060322, end: 20061212
  2. DEXAMETHASONE TAB [Suspect]
     Indication: MULTIPLE MYELOMA
     Dosage: 40 MG, QD ON DAYS 1,8,15, + 22, EVERY 28 DAYS, ORAL
     Route: 048
     Dates: start: 20060322, end: 20061213

REACTIONS (1)
  - HYPERGLYCAEMIA [None]
